FAERS Safety Report 24785752 (Version 2)
Quarter: 2024Q4

REPORT INFORMATION
  Report Type: Spontaneous
  Country: US (occurrence: US)
  Receive Date: 20241229
  Receipt Date: 20241231
  Transmission Date: 20250115
  Serious: No
  Sender: SANOFI AVENTIS
  Company Number: US-SANOFI-02348991

PATIENT
  Age: 83 Year
  Sex: Male

DRUGS (1)
  1. LANTUS [Suspect]
     Active Substance: INSULIN GLARGINE
     Indication: Type 2 diabetes mellitus
     Dosage: HE TAKES AROUND 30 UNITS PER DAY, BUT HE DOES NOT TAKE IT AT THE SAME TIME, SOMETIMES HE SPLITS IT I

REACTIONS (1)
  - Off label use [Unknown]
